FAERS Safety Report 4867348-8 (Version None)
Quarter: 2005Q4

REPORT INFORMATION
  Report Type: 
  Country: None (occurrence: None)
  Receive Date: 20051222
  Receipt Date: 20051213
  Transmission Date: 20060501
  Serious: Yes (Other)
  Sender: FDA-Public Use
  Company Number: 2005168307

PATIENT
  Age: 65 Year
  Sex: Male
  Weight: 114.76 kg

DRUGS (12)
  1. ZOLOFT [Suspect]
     Indication: DEPRESSION
     Dosage: 50 MG (50 MG, 1 IN 1 D), ORAL
     Route: 048
     Dates: start: 20031101
  2. VIAGRA [Suspect]
     Indication: ERECTILE DYSFUNCTION
     Dosage: 25 MG (25 MG, 1 IN 1 D)
     Dates: start: 20041101
  3. ANTIDEPRESSANTS (ANTIDEPRESSANTS) [Concomitant]
  4. AVANDIA [Concomitant]
  5. BENICAR [Concomitant]
  6. NEXIUM [Concomitant]
  7. REQUIP [Concomitant]
  8. STALEVO (CARBIDOPA, ENTACAPONE, LEVODOPA) [Concomitant]
  9. FUROSEMIDE [Concomitant]
  10. METOPROLOL SUCCINATE [Concomitant]
  11. DETROL LA [Concomitant]
  12. SELEGELINE HYDROCHLORIDE [Concomitant]

REACTIONS (6)
  - DRUG INEFFECTIVE [None]
  - ERECTILE DYSFUNCTION [None]
  - PROSTATIC DISORDER [None]
  - PULMONARY THROMBOSIS [None]
  - RENAL FAILURE ACUTE [None]
  - THROMBOSIS [None]
